FAERS Safety Report 4882610-0 (Version None)
Quarter: 2006Q1

REPORT INFORMATION
  Report Type: 
  Country: None (occurrence: None)
  Receive Date: 20060113
  Receipt Date: 20060106
  Transmission Date: 20060701
  Serious: Yes (Hospitalization)
  Sender: FDA-Public Use
  Company Number: 2005BI018149

PATIENT
  Age: 67 Year
  Sex: Female

DRUGS (13)
  1. AVONEX [Suspect]
     Indication: MULTIPLE SCLEROSIS
     Dosage: IM
     Route: 030
  2. BACLOFEN [Concomitant]
  3. ZANAFLEX [Concomitant]
  4. NEURONTIN [Concomitant]
  5. LISINOPRIL [Concomitant]
  6. OXYBUTININ [Concomitant]
  7. ZETIA [Concomitant]
  8. ATIVAN [Concomitant]
  9. IMIPRAMINE [Concomitant]
  10. PRAVACHOL [Concomitant]
  11. METOPROLOL [Concomitant]
  12. CARBAMAZEPINE [Concomitant]
  13. ASPIRIN [Concomitant]

REACTIONS (3)
  - ACCIDENT [None]
  - FALL [None]
  - WHEELCHAIR USER [None]
